FAERS Safety Report 9613107 (Version 1)
Quarter: 2013Q4

REPORT INFORMATION
  Report Type: Spontaneous
  Country: LT (occurrence: LT)
  Receive Date: 20131010
  Receipt Date: 20131010
  Transmission Date: 20140711
  Serious: Yes (Hospitalization, Other)
  Sender: FDA-Public Use
  Company Number: PHHY2013LT113027

PATIENT
  Age: 32 Year
  Sex: Male

DRUGS (20)
  1. TRIHEXYPHENIDYL [Suspect]
     Indication: SCHIZOPHRENIA
     Dosage: 6 MG, QD
  2. TRIHEXYPHENIDYL [Suspect]
     Dosage: 4 MG, QD
  3. TRIHEXYPHENIDYL [Suspect]
     Dosage: 4 MG, QD
  4. HALOPERIDOL [Suspect]
     Indication: SCHIZOPHRENIA
     Dosage: 30 MG, QD
  5. HALOPERIDOL [Suspect]
     Dosage: 15 MG, QD
  6. HALOPERIDOL [Suspect]
     Dosage: 15 MG, QD
  7. HALOPERIDOL [Suspect]
     Dosage: 10 MG, QD
     Route: 030
  8. CHLORPROMAZINE [Suspect]
     Indication: SCHIZOPHRENIA
     Dosage: 100 MG, QD
  9. CHLORPROMAZINE [Suspect]
     Dosage: 100 MG, QD
  10. RISPERIDONE [Suspect]
     Indication: SCHIZOPHRENIA
     Dosage: 2 MG, QD
  11. RISPERIDONE [Suspect]
     Dosage: 6 MG, QD
  12. AMISULPRIDE [Suspect]
     Indication: SCHIZOPHRENIA
  13. DEPAKIN [Suspect]
     Indication: SCHIZOPHRENIA
     Dosage: 1500 MG, QD
     Route: 048
  14. DEPAKIN [Suspect]
     Dosage: 1500 MG, QD
     Route: 048
  15. CHLORPROTHIXENE [Suspect]
     Dosage: 400 MG, QD
  16. CISORDINOL ACUTARD [Suspect]
     Dosage: 50 MG EVERY SECOND DAY
  17. CISORDINOL DEPOT [Suspect]
     Dosage: 200 MG, UNK
  18. DIAZEPAM [Concomitant]
     Dosage: 20 MG, QD
  19. DIAZEPAM [Concomitant]
     Dosage: 40 MG, QD
  20. DIAZEPAM [Concomitant]
     Dosage: 40 MG, QD
     Route: 030

REACTIONS (27)
  - Apathy [Recovering/Resolving]
  - Schizophrenia [Recovering/Resolving]
  - Depression [Recovering/Resolving]
  - Anxiety [Recovering/Resolving]
  - Aggression [Recovering/Resolving]
  - Abnormal behaviour [Recovering/Resolving]
  - Communication disorder [Recovering/Resolving]
  - Feeling jittery [Recovering/Resolving]
  - Mood swings [Recovering/Resolving]
  - Insomnia [Recovering/Resolving]
  - Agitation [Recovering/Resolving]
  - Mania [Recovering/Resolving]
  - Libido disorder [Recovering/Resolving]
  - Euphoric mood [Recovering/Resolving]
  - Anger [Recovering/Resolving]
  - Irritability [Recovering/Resolving]
  - Tension [Recovering/Resolving]
  - Suspiciousness [Recovering/Resolving]
  - Fatigue [Recovering/Resolving]
  - Attention-seeking behaviour [Recovering/Resolving]
  - Impatience [Recovering/Resolving]
  - Restlessness [Recovering/Resolving]
  - Thinking abnormal [Recovering/Resolving]
  - Delusion [Recovering/Resolving]
  - Disturbance in attention [Recovering/Resolving]
  - Emotional disorder [Recovering/Resolving]
  - Drug ineffective [Unknown]
